FAERS Safety Report 17670976 (Version 1)
Quarter: 2020Q2

REPORT INFORMATION
  Report Type: Report from Study
  Country: None (occurrence: US)
  Receive Date: 20200415
  Receipt Date: 20200415
  Transmission Date: 20200713
  Serious: Yes (Hospitalization, Other)
  Sender: FDA-Public Use
  Company Number: US-BIOVITRUM-2020US0092

PATIENT
  Age: 5 Year
  Sex: Male

DRUGS (1)
  1. KINERET [Suspect]
     Active Substance: ANAKINRA
     Indication: JUVENILE IDIOPATHIC ARTHRITIS
     Route: 058
     Dates: start: 20190612

REACTIONS (11)
  - Cough [Unknown]
  - Wheezing [Unknown]
  - Off label use [Unknown]
  - Headache [Unknown]
  - Upper respiratory tract infection [Unknown]
  - Synovial cyst [Unknown]
  - Haemoglobin increased [Unknown]
  - C-reactive protein increased [Unknown]
  - Lymphadenopathy [Unknown]
  - Adrenal insufficiency [Unknown]
  - Pyrexia [Unknown]

NARRATIVE: CASE EVENT DATE: 20190610
